FAERS Safety Report 5313627-X (Version None)
Quarter: 2007Q2

REPORT INFORMATION
  Report Type: 
  Country: None (occurrence: None)
  Receive Date: 20070425
  Receipt Date: 20070417
  Transmission Date: 20071010
  Serious: Yes (Other)
  Sender: FDA-Public Use
  Company Number: 2007SP007196

PATIENT
  Age: 50 Year
  Sex: Male
  Weight: 117 kg

DRUGS (6)
  1. INTRON A [Suspect]
     Indication: DRUG USE FOR UNKNOWN INDICATION
     Dosage: 300 MIU;TIW;SC
     Route: 058
  2. LORAZEPAM [Concomitant]
  3. RITALIN [Concomitant]
  4. OMEPRAZOLE [Concomitant]
  5. RAMIPRIL [Concomitant]
  6. DIOVAN [Concomitant]

REACTIONS (5)
  - BACK PAIN [None]
  - NEOPLASM MALIGNANT [None]
  - PAIN IN EXTREMITY [None]
  - PROSTATIC DISORDER [None]
  - PROSTATIC SPECIFIC ANTIGEN INCREASED [None]
